FAERS Safety Report 21749471 (Version 1)
Quarter: 2022Q4

REPORT INFORMATION
  Report Type: Spontaneous
  Country: GR (occurrence: GR)
  Receive Date: 20221219
  Receipt Date: 20221219
  Transmission Date: 20230113
  Serious: Yes (Hospitalization, Other)
  Sender: FDA-Public Use
  Company Number: GR-OPUSMATERIA-2022003

PATIENT
  Age: 41 Year
  Sex: Female

DRUGS (1)
  1. ONDANSETRON [Suspect]
     Active Substance: ONDANSETRON
     Indication: Nausea
     Dosage: 4 MILLIGRAM,(TOTAL)
     Route: 042

REACTIONS (2)
  - Supraventricular tachycardia [Recovered/Resolved]
  - Electrocardiogram QRS complex shortened [Recovered/Resolved]
